FAERS Safety Report 5789297-3 (Version None)
Quarter: 2008Q2

REPORT INFORMATION
  Report Type: 
  Country: None (occurrence: None)
  Receive Date: 20080626
  Receipt Date: 20080207
  Transmission Date: 20081010
  Serious: No
  Sender: FDA-Public Use
  Company Number: US-ASTRAZENECA-2008UW02694

PATIENT
  Age: 73 Year
  Sex: Female

DRUGS (4)
  1. PULMICORT FLEXHALER [Suspect]
     Indication: EMPHYSEMA
     Route: 055
     Dates: start: 20080203
  2. SPIRIVA [Concomitant]
  3. FLORADIL [Concomitant]
  4. PULMICORT-100 [Concomitant]

REACTIONS (2)
  - DEVICE MISUSE [None]
  - DRY MOUTH [None]
